FAERS Safety Report 6388785-9 (Version None)
Quarter: 2009Q4

REPORT INFORMATION
  Report Type: 
  Country: None (occurrence: None)
  Receive Date: 20091002
  Receipt Date: 20091002
  Transmission Date: 20100525
  Serious: Yes (Hospitalization)
  Sender: FDA-Public Use
  Company Number: None

PATIENT
  Age: 78 Year
  Sex: Male

DRUGS (3)
  1. ASPIRIN [Suspect]
     Indication: CARDIOVASCULAR DISORDER
     Dosage: 325 MG EVERY DAY PO
     Route: 048
     Dates: start: 19991116, end: 20090326
  2. ASPIRIN [Suspect]
     Indication: PROPHYLAXIS
     Dosage: 325 MG EVERY DAY PO
     Route: 048
     Dates: start: 19991116, end: 20090326
  3. ASPIRIN [Suspect]
     Indication: INFLUENZA LIKE ILLNESS
     Dosage: PO
     Route: 048

REACTIONS (4)
  - ANAEMIA [None]
  - DYSPNOEA [None]
  - GASTRIC ULCER [None]
  - UPPER GASTROINTESTINAL HAEMORRHAGE [None]
